FAERS Safety Report 8566052-2 (Version None)
Quarter: 2012Q3

REPORT INFORMATION
  Report Type: 
  Country: None (occurrence: None)
  Receive Date: 20120803
  Receipt Date: 20111126
  Transmission Date: 20120928
  Serious: No
  Sender: FDA-Public Use
  Company Number: US-ABBOTT-11P-163-0877907-00

PATIENT
  Sex: Female
  Weight: 72.64 kg

DRUGS (9)
  1. GLUCOPHAGE [Concomitant]
     Indication: PRODUCT USED FOR UNKNOWN INDICATION
  2. XANAX [Concomitant]
     Indication: PRODUCT USED FOR UNKNOWN INDICATION
  3. NIASPAN [Suspect]
     Indication: HIGH DENSITY LIPOPROTEIN DECREASED
  4. NIASPAN [Suspect]
     Indication: LOW DENSITY LIPOPROTEIN INCREASED
     Dosage: AT BEDTIME
  5. DEXLANSOPRAZOLE [Concomitant]
     Indication: PRODUCT USED FOR UNKNOWN INDICATION
  6. LASIX [Concomitant]
     Indication: PRODUCT USED FOR UNKNOWN INDICATION
  7. CRESTOR [Concomitant]
     Indication: PRODUCT USED FOR UNKNOWN INDICATION
  8. MICARDIS [Concomitant]
     Indication: PRODUCT USED FOR UNKNOWN INDICATION
  9. ASPIRIN [Concomitant]
     Indication: PRODUCT USED FOR UNKNOWN INDICATION

REACTIONS (3)
  - NAUSEA [None]
  - INFLUENZA LIKE ILLNESS [None]
  - ABDOMINAL DISCOMFORT [None]
